FAERS Safety Report 9027181 (Version 1)
Quarter: 2013Q1

REPORT INFORMATION
  Report Type: Spontaneous
  Country: DE (occurrence: DE)
  Receive Date: 20130123
  Receipt Date: 20130123
  Transmission Date: 20140127
  Serious: Yes (Hospitalization)
  Sender: FDA-Public Use
  Company Number: DE-GLAXOSMITHKLINE-D0078518A

PATIENT
  Age: 29 Year
  Sex: Female

DRUGS (1)
  1. MALARONE [Suspect]
     Route: 048
     Dates: end: 20130119

REACTIONS (3)
  - Chills [Unknown]
  - Headache [Unknown]
  - Cardiac discomfort [Unknown]
